FAERS Safety Report 16671396 (Version 1)
Quarter: 2019Q3

REPORT INFORMATION
  Report Type: Spontaneous
  Country: US (occurrence: US)
  Receive Date: 20190806
  Receipt Date: 20190806
  Transmission Date: 20191004
  Serious: No
  Sender: FDA-Public Use
  Company Number: US-GLENMARK PHARMACEUTICALS-2019GMK042157

PATIENT

DRUGS (7)
  1. NIZATIDINE CAPSULES USP, 150 MG [Suspect]
     Active Substance: NIZATIDINE
     Indication: DYSPEPSIA
  2. CELEBREX [Concomitant]
     Active Substance: CELECOXIB
     Indication: BACK DISORDER
  3. ADVIL PM [Concomitant]
     Active Substance: DIPHENHYDRAMINE CITRATE\IBUPROFEN
     Indication: PRODUCT USED FOR UNKNOWN INDICATION
     Dosage: UNK
     Route: 065
  4. CELEBREX [Concomitant]
     Active Substance: CELECOXIB
     Indication: ANTIINFLAMMATORY THERAPY
     Dosage: UNK
     Route: 065
  5. NIZATIDINE CAPSULES USP, 150 MG [Suspect]
     Active Substance: NIZATIDINE
     Indication: GASTROOESOPHAGEAL REFLUX DISEASE
     Dosage: 150 MG, OD (EVENING)
     Route: 065
     Dates: end: 20190707
  6. NIZATIDINE CAPSULES USP, 150 MG [Suspect]
     Active Substance: NIZATIDINE
     Indication: GASTROOESOPHAGEAL REFLUX DISEASE
  7. OMEPRAZOLE. [Concomitant]
     Active Substance: OMEPRAZOLE
     Indication: GASTROOESOPHAGEAL REFLUX DISEASE
     Dosage: UNK, OD (IN THE MORNING)
     Route: 067

REACTIONS (3)
  - Diarrhoea [Not Recovered/Not Resolved]
  - Product dose omission [Unknown]
  - Withdrawal syndrome [Not Recovered/Not Resolved]
